FAERS Safety Report 5194285-4 (Version None)
Quarter: 2006Q4

REPORT INFORMATION
  Report Type: 
  Country: None (occurrence: None)
  Receive Date: 20061228
  Receipt Date: 20060914
  Transmission Date: 20070319
  Serious: Yes (Hospitalization, Other)
  Sender: FDA-Public Use
  Company Number: US-ABBOTT-06P-163-0344406-00

PATIENT
  Sex: Male

DRUGS (5)
  1. HUMIRA [Suspect]
     Indication: PSORIASIS
     Route: 058
     Dates: start: 20060401, end: 20060912
  2. RISPERIDONE [Concomitant]
     Indication: DEPRESSION
  3. BENZTROPEINE [Concomitant]
     Indication: DEPRESSION
  4. BUPROPION HYDROCHLORIDE [Concomitant]
     Indication: DEPRESSION
  5. LITHIUM CARBONATE [Concomitant]
     Indication: DEPRESSION

REACTIONS (4)
  - AFFECTIVE DISORDER [None]
  - CATATONIA [None]
  - DEPRESSION [None]
  - PSYCHOTIC DISORDER [None]
